FAERS Safety Report 24122687 (Version 3)
Quarter: 2025Q1

REPORT INFORMATION
  Report Type: Spontaneous
  Country: US (occurrence: US)
  Receive Date: 20240723
  Receipt Date: 20250108
  Transmission Date: 20250409
  Serious: No
  Sender: SANOFI AVENTIS
  Company Number: US-SA-SAC20240719000345

PATIENT
  Age: 63 Year
  Sex: Female
  Weight: 68.934 kg

DRUGS (7)
  1. DUPIXENT [Suspect]
     Active Substance: DUPILUMAB
     Indication: Dermatitis atopic
     Route: 058
     Dates: start: 20240705, end: 20240705
  2. DUPIXENT [Suspect]
     Active Substance: DUPILUMAB
     Indication: Neurodermatitis
     Dosage: 300 MG, QOW
     Route: 058
     Dates: start: 202407
  3. PIMECROLIMUS [Concomitant]
     Active Substance: PIMECROLIMUS
  4. AZELAIC ACID [Concomitant]
     Active Substance: AZELAIC ACID
  5. POLYVINYL ALCOHOL\POVIDONE [Concomitant]
     Active Substance: POLYVINYL ALCOHOL\POVIDONE
  6. OPCON-A [Concomitant]
     Active Substance: NAPHAZOLINE HYDROCHLORIDE\PHENIRAMINE MALEATE
  7. REFRESH TEARS [Concomitant]
     Active Substance: CARBOXYMETHYLCELLULOSE SODIUM

REACTIONS (16)
  - Skin discolouration [Unknown]
  - Eye infection [Not Recovered/Not Resolved]
  - Dry skin [Not Recovered/Not Resolved]
  - Stress [Not Recovered/Not Resolved]
  - Skin hyperpigmentation [Not Recovered/Not Resolved]
  - Myalgia [Not Recovered/Not Resolved]
  - Ocular hyperaemia [Not Recovered/Not Resolved]
  - Headache [Unknown]
  - Vision blurred [Not Recovered/Not Resolved]
  - Dry eye [Unknown]
  - Dermatitis atopic [Unknown]
  - Rash [Unknown]
  - Eye pruritus [Unknown]
  - Eyelids pruritus [Unknown]
  - Oral herpes [Unknown]
  - Arthralgia [Not Recovered/Not Resolved]

NARRATIVE: CASE EVENT DATE: 20240101
